FAERS Safety Report 18232099 (Version 1)
Quarter: 2020Q3

REPORT INFORMATION
  Report Type: Spontaneous
  Country: US (occurrence: US)
  Receive Date: 20200904
  Receipt Date: 20200904
  Transmission Date: 20201103
  Serious: No
  Sender: FDA-Public Use
  Company Number: US-ASPEN-GLO2020US008335

PATIENT
  Age: 54 Year
  Sex: Male

DRUGS (1)
  1. CHLORAMBUCIL [Suspect]
     Active Substance: CHLORAMBUCIL
     Indication: PEMPHIGOID
     Route: 065

REACTIONS (1)
  - Off label use [Unknown]
